FAERS Safety Report 9523707 (Version 1)
Quarter: 2013Q3

REPORT INFORMATION
  Report Type: Report from Study
  Country: US (occurrence: US)
  Receive Date: 20130913
  Receipt Date: 20130913
  Transmission Date: 20140515
  Serious: Yes (Hospitalization)
  Sender: FDA-Public Use
  Company Number: US-ROCHE-1275717

PATIENT
  Age: 57 Year
  Sex: Female
  Weight: 92.7 kg

DRUGS (9)
  1. RIBAVIRIN [Suspect]
     Indication: HEPATITIS C
     Dosage: 200MG BID EVERY OTHER DAY
     Route: 048
     Dates: start: 20130805
  2. SOFOSBUVIR [Suspect]
     Indication: HEPATITIS C
     Route: 048
     Dates: start: 20130805
  3. CIPROFLOXACIN [Concomitant]
     Route: 065
     Dates: start: 20130807
  4. LACTULOSE [Concomitant]
     Route: 065
     Dates: start: 20130807
  5. ZOFRAN [Concomitant]
     Route: 065
     Dates: start: 20130807
  6. CHOLECALCIFEROL [Concomitant]
     Route: 065
     Dates: start: 20130807
  7. SPIRONOLACTONE [Concomitant]
     Route: 065
     Dates: start: 20130807
  8. FUROSEMIDE [Concomitant]
     Route: 065
     Dates: start: 20130807
  9. CYCLOSPORINE [Concomitant]
     Route: 065
     Dates: start: 201103

REACTIONS (2)
  - Mental status changes [Recovered/Resolved with Sequelae]
  - Vomiting [Recovered/Resolved]
